FAERS Safety Report 7250020-7 (Version None)
Quarter: 2011Q1

REPORT INFORMATION
  Report Type: 
  Country: None (occurrence: None)
  Receive Date: 20110128
  Receipt Date: 20110120
  Transmission Date: 20110831
  Serious: Yes (Other)
  Sender: FDA-Public Use
  Company Number: US-PURDUE-USA-2010-0049036

PATIENT
  Sex: Female
  Weight: 43.991 kg

DRUGS (5)
  1. DONABALL [Concomitant]
     Indication: ABDOMINAL DISCOMFORT
  2. PERCOCET [Concomitant]
     Indication: PAIN
     Dosage: 15 MG, Q3H
     Dates: start: 20090205
  3. ADDERALL 10 [Concomitant]
     Indication: PRODUCT USED FOR UNKNOWN INDICATION
     Dosage: 20 MG, BID
     Dates: start: 20090205
  4. OXYCONTIN [Suspect]
     Indication: MULTIPLE SCLEROSIS
     Dosage: 40 MG, TID
     Dates: start: 20100908
  5. OXYCONTIN [Suspect]
     Indication: PAIN

REACTIONS (14)
  - PLEURITIC PAIN [None]
  - NAUSEA [None]
  - ABDOMINAL PAIN UPPER [None]
  - CONSTIPATION [None]
  - WEIGHT DECREASED [None]
  - LARYNGITIS [None]
  - ABDOMINAL DISCOMFORT [None]
  - INADEQUATE ANALGESIA [None]
  - LUNG NEOPLASM [None]
  - SENSATION OF HEAVINESS [None]
  - ABDOMINAL DISTENSION [None]
  - OESOPHAGEAL OEDEMA [None]
  - VIITH NERVE PARALYSIS [None]
  - THERAPEUTIC RESPONSE DECREASED [None]
